FAERS Safety Report 6751340-2 (Version None)
Quarter: 2010Q2

REPORT INFORMATION
  Report Type: 
  Country: None (occurrence: None)
  Receive Date: 20100527
  Receipt Date: 20080623
  Transmission Date: 20101027
  Serious: Yes (Hospitalization)
  Sender: FDA-Public Use
  Company Number: LEO-2010-00431

PATIENT
  Sex: Male
  Weight: 2.469 kg

DRUGS (5)
  1. INNOHEP [Suspect]
     Indication: DRUG EXPOSURE DURING PREGNANCY
     Dosage: TRANSPLACENTAL
     Route: 064
     Dates: start: 20020802, end: 20030211
  2. ASPIRIN [Concomitant]
  3. FOLIC ACID [Concomitant]
  4. PAROXETINE HCL [Concomitant]
  5. BUSERELIN (BUSERELIN) [Concomitant]

REACTIONS (4)
  - APGAR SCORE LOW [None]
  - CAESAREAN SECTION [None]
  - MATERNAL DRUGS AFFECTING FOETUS [None]
  - PREMATURE BABY [None]
